FAERS Safety Report 25625401 (Version 1)
Quarter: 2025Q3

REPORT INFORMATION
  Report Type: Spontaneous
  Country: JP (occurrence: JP)
  Receive Date: 20250731
  Receipt Date: 20250731
  Transmission Date: 20251021
  Serious: Yes (Hospitalization, Other)
  Sender: ASTELLAS
  Company Number: JP-ASTELLAS-2025-AER-040879

PATIENT
  Age: 84 Year
  Sex: Female

DRUGS (11)
  1. VESICARE [Suspect]
     Active Substance: SOLIFENACIN SUCCINATE
     Indication: Product used for unknown indication
     Route: 048
     Dates: end: 20250614
  2. Mucosta tablet 100mg [Concomitant]
     Indication: Product used for unknown indication
     Route: 048
  3. EXFORGE combination tablet [Concomitant]
     Indication: Product used for unknown indication
     Route: 048
  4. Magnesium Oxide Powder [Concomitant]
     Indication: Product used for unknown indication
     Route: 048
  5. Lexotan tablet 2 [Concomitant]
     Indication: Product used for unknown indication
     Route: 048
  6. Gaster D Tablets 10 mg [Concomitant]
     Indication: Product used for unknown indication
     Route: 048
  7. CETIRIZINE HYDROCHLORIDE tablet 10 mg [Concomitant]
     Indication: Product used for unknown indication
     Route: 048
  8. CLARITHROMYCIN tablet 200 mg [Concomitant]
     Indication: Product used for unknown indication
     Route: 048
  9. Esanbutol tablet 250 mg [Concomitant]
     Indication: Product used for unknown indication
     Route: 048
  10. Mucosolvan L tablet 45 mg [Concomitant]
     Indication: Product used for unknown indication
     Route: 048
  11. OPALMON tablet 5 ug [Concomitant]
     Indication: Product used for unknown indication
     Route: 048

REACTIONS (3)
  - Acute kidney injury [Recovering/Resolving]
  - Cardiac failure congestive [Unknown]
  - Sinus node dysfunction [Recovering/Resolving]

NARRATIVE: CASE EVENT DATE: 20250612
